FAERS Safety Report 10378547 (Version 4)
Quarter: 2015Q2

REPORT INFORMATION
  Report Type: Spontaneous
  Country: US (occurrence: US)
  Receive Date: 20140812
  Receipt Date: 20150529
  Transmission Date: 20150821
  Serious: Yes (Death, Hospitalization, Other)
  Sender: FDA-Public Use
  Company Number: US-009507513-1408USA005698

PATIENT
  Sex: Female
  Weight: 59.41 kg

DRUGS (1)
  1. JANUVIA [Suspect]
     Active Substance: SITAGLIPTIN PHOSPHATE
     Indication: TYPE 2 DIABETES MELLITUS
     Dosage: 100 MG, QD
     Route: 048
     Dates: start: 20061206, end: 20081124

REACTIONS (68)
  - Upper gastrointestinal haemorrhage [Unknown]
  - Adhesion [Unknown]
  - Cholecystitis infective [Unknown]
  - Cholecystectomy [Unknown]
  - Deep vein thrombosis [Unknown]
  - Atrial fibrillation [Unknown]
  - Upper gastrointestinal haemorrhage [Unknown]
  - Stomach mass [Unknown]
  - Influenza like illness [Unknown]
  - Angioplasty [Unknown]
  - Oedema peripheral [Unknown]
  - Lymphadenectomy [Unknown]
  - Metastases to liver [Unknown]
  - Chondrocalcinosis pyrophosphate [Recovering/Resolving]
  - Sleep apnoea syndrome [Unknown]
  - Arthroscopy [Unknown]
  - Heart rate increased [Unknown]
  - Splenectomy [Unknown]
  - Metastases to lymph nodes [Unknown]
  - Mucinous adenocarcinoma of appendix [Unknown]
  - Gastrectomy [Unknown]
  - Pancreatic carcinoma recurrent [Unknown]
  - Acute kidney injury [Unknown]
  - Appendicectomy [Unknown]
  - Impaired healing [Unknown]
  - Gastrointestinal disorder [Unknown]
  - Hyperaemia [Unknown]
  - Inflammation [Unknown]
  - Radiotherapy [Unknown]
  - Blood glucose decreased [Unknown]
  - Arthritis [Unknown]
  - Atrial fibrillation [Not Recovered/Not Resolved]
  - Adenocarcinoma pancreas [Fatal]
  - Cardiac arrest [Unknown]
  - Gastrooesophageal reflux disease [Unknown]
  - Impaired healing [Recovering/Resolving]
  - Hiatus hernia [Unknown]
  - Pancreatectomy [Unknown]
  - Hypovolaemic shock [Unknown]
  - Cholecystostomy [Unknown]
  - Hypotension [Unknown]
  - Atrial fibrillation [Unknown]
  - Pancreatic cyst [Unknown]
  - Lymphadenopathy [Unknown]
  - Cataract [Unknown]
  - Urinary retention [Unknown]
  - Pancreaticoduodenectomy [Unknown]
  - Gastrectomy [Unknown]
  - Abdominal wall neoplasm malignant [Unknown]
  - Haematoma [Unknown]
  - Hysterectomy [Unknown]
  - Osteoporosis [Unknown]
  - Hypoglycaemia [Unknown]
  - Explorative laparotomy [Unknown]
  - Pancreatic mass [Unknown]
  - Gastrointestinal surgery [Unknown]
  - Adrenalectomy [Unknown]
  - Colectomy [Unknown]
  - Chronic kidney disease [Unknown]
  - Gastrointestinal ulcer [Unknown]
  - Anaemia [Unknown]
  - Appendicitis [Unknown]
  - Chondrocalcinosis pyrophosphate [Recovered/Resolved]
  - Catheter site erythema [Unknown]
  - Pulmonary hypertension [Unknown]
  - Haematochezia [Unknown]
  - Vitamin D deficiency [Unknown]
  - Arthralgia [Unknown]

NARRATIVE: CASE EVENT DATE: 2008
